FAERS Safety Report 8951345 (Version 1)
Quarter: 2012Q4

REPORT INFORMATION
  Report Type: 
  Country: US (occurrence: US)
  Receive Date: 20121207
  Receipt Date: 20121207
  Transmission Date: 20130627
  Serious: Yes (Hospitalization)
  Sender: FDA-Public Use
  Company Number: US-SHIRE-ALL1-2012-05958

PATIENT
  Age: 48 None
  Sex: Female
  Weight: 48.5 kg

DRUGS (2)
  1. FOSRENOL [Suspect]
     Indication: RENAL FAILURE CHRONIC
     Dosage: 500 mg, Other (4 per day)
     Route: 048
     Dates: start: 201203
  2. FOSRENOL [Suspect]
     Indication: HYPERPARATHYROIDISM SECONDARY

REACTIONS (8)
  - Chronic obstructive pulmonary disease [Unknown]
  - Hypertension [Unknown]
  - Vomiting [Unknown]
  - Abdominal pain upper [Unknown]
  - Wheezing [Unknown]
  - Abdominal discomfort [Not Recovered/Not Resolved]
  - Dyspnoea [Unknown]
  - Nausea [Unknown]
